FAERS Safety Report 6874419-3 (Version None)
Quarter: 2010Q3

REPORT INFORMATION
  Report Type: 
  Country: None (occurrence: None)
  Receive Date: 20100723
  Receipt Date: 20100723
  Transmission Date: 20110219
  Serious: Yes (Hospitalization)
  Sender: FDA-Public Use
  Company Number: None

PATIENT
  Sex: Female
  Weight: 93 kg

DRUGS (3)
  1. CARBOPLATIN [Suspect]
     Dosage: 807 MG
     Dates: end: 20100701
  2. TAXOTERE [Suspect]
     Dosage: 148 MG
     Dates: end: 20100701
  3. HERCEPTIN [Suspect]
     Dosage: 751 MG
     Dates: end: 20100715

REACTIONS (4)
  - BLOOD IRON DECREASED [None]
  - DYSPNOEA [None]
  - HAEMOGLOBIN DECREASED [None]
  - PALPITATIONS [None]
